FAERS Safety Report 5036664-1 (Version None)
Quarter: 2006Q2

REPORT INFORMATION
  Report Type: 
  Country: None (occurrence: None)
  Receive Date: 20060601
  Receipt Date: 20060405
  Transmission Date: 20061013
  Serious: No
  Sender: FDA-Public Use
  Company Number: US200604000813

PATIENT
  Age: 33 Year
  Sex: Male

DRUGS (8)
  1. CYMBALTA [Suspect]
     Indication: DEPRESSION
     Dosage: SEE IMAGE
     Dates: start: 20060323, end: 20060403
  2. CYMBALTA [Suspect]
     Indication: DEPRESSION
     Dosage: SEE IMAGE
     Dates: start: 20060404
  3. ASPIRIN [Concomitant]
  4. METOPROLOL [Concomitant]
  5. POTASSIUM [Concomitant]
  6. PREVACID [Concomitant]
  7. NEURONTIN [Concomitant]
  8. MEMANTINE HCL [Concomitant]

REACTIONS (6)
  - ABDOMINAL DISCOMFORT [None]
  - CONSTIPATION [None]
  - DYSURIA [None]
  - FLATULENCE [None]
  - INCREASED VISCOSITY OF BRONCHIAL SECRETION [None]
  - SEDATION [None]
